FAERS Safety Report 18967990 (Version 1)
Quarter: 2021Q1

REPORT INFORMATION
  Report Type: Spontaneous
  Country: US (occurrence: US)
  Receive Date: 20210303
  Receipt Date: 20210303
  Transmission Date: 20210420
  Serious: Yes (Life-Threatening, Hospitalization)
  Sender: FDA-Public Use
  Company Number: None

PATIENT
  Age: 49 Year
  Sex: Male
  Weight: 95 kg

DRUGS (1)
  1. TRAMADOL (TRAMADOL HCL 50MG TAB) [Suspect]
     Active Substance: TRAMADOL HYDROCHLORIDE
     Indication: PAIN
     Route: 048
     Dates: start: 20200825, end: 20201214

REACTIONS (8)
  - Diabetic ketoacidosis [None]
  - Respiratory failure [None]
  - Pneumonia aspiration [None]
  - Seizure [None]
  - Dysphagia [None]
  - Encephalopathy [None]
  - Mental status changes [None]
  - Unresponsive to stimuli [None]

NARRATIVE: CASE EVENT DATE: 20200907
